FAERS Safety Report 17222113 (Version 1)
Quarter: 2019Q4

REPORT INFORMATION
  Report Type: Spontaneous
  Country: US (occurrence: US)
  Receive Date: 20191209
  Receipt Date: 20191209
  Transmission Date: 20200122
  Serious: No
  Sender: FDA-Public Use
  Company Number: None

PATIENT
  Age: 56 Year
  Sex: Female

DRUGS (1)
  1. REBIF REBIDOSE [Suspect]
     Active Substance: INTERFERON BETA-1A
     Dosage: ?          OTHER FREQUENCY:UNKNOWN;?
     Route: 058
     Dates: start: 2005, end: 2019

REACTIONS (5)
  - Injection site swelling [None]
  - Malaise [None]
  - Injection site induration [None]
  - Injection site pain [None]
  - Therapy cessation [None]

NARRATIVE: CASE EVENT DATE: 20191209
